FAERS Safety Report 4941575-3 (Version None)
Quarter: 2006Q1

REPORT INFORMATION
  Report Type: 
  Country: None (occurrence: None)
  Receive Date: 20060308
  Receipt Date: 20060223
  Transmission Date: 20060701
  Serious: Yes (Hospitalization)
  Sender: FDA-Public Use
  Company Number: 2005EU002623

PATIENT
  Age: 1 Day
  Sex: Male
  Weight: 0.9 kg

DRUGS (2)
  1. PROGRAF [Suspect]
     Indication: RENAL TRANSPLANT
     Dosage: TRANSPLACENTAL
     Route: 064
     Dates: end: 20050310
  2. CELLCEPT [Suspect]
     Indication: RENAL TRANSPLANT
     Dosage: TRANSPLACENTAL
     Route: 064
     Dates: end: 20050310

REACTIONS (11)
  - CLEFT PALATE [None]
  - COLOBOMA [None]
  - CONGENITAL ANOMALY [None]
  - DRUG EXPOSURE DURING PREGNANCY [None]
  - FACIAL DYSMORPHISM [None]
  - GLOSSOPTOSIS [None]
  - HEAD DEFORMITY [None]
  - MANDIBULOFACIAL DYSOSTOSIS [None]
  - MICROTIA [None]
  - PREMATURE LABOUR [None]
  - SYNDACTYLY [None]
